FAERS Safety Report 4559941-7 (Version None)
Quarter: 2005Q1

REPORT INFORMATION
  Report Type: 
  Country: None (occurrence: None)
  Receive Date: 20050124
  Receipt Date: 20050117
  Transmission Date: 20050727
  Serious: Yes (Other)
  Sender: FDA-Public Use
  Company Number: 003946

PATIENT
  Age: 55 Year
  Sex: Female

DRUGS (5)
  1. MEDROXYPROGESTERONE ACETATE [Suspect]
     Dosage: ORAL
     Route: 048
     Dates: start: 19940101, end: 20020101
  2. ESTRADIOL [Suspect]
     Dosage: ORAL
     Route: 048
     Dates: start: 19940101, end: 20020101
  3. PROVERA [Suspect]
     Dosage: ORAL
     Route: 048
     Dates: start: 19940101, end: 20020101
  4. CYCRIN [Suspect]
     Dosage: ORAL
     Route: 048
     Dates: start: 19940101, end: 20020101
  5. ESTRACE [Suspect]
     Route: 048
     Dates: start: 19940101, end: 20020101

REACTIONS (1)
  - BREAST CANCER [None]
